FAERS Safety Report 14412929 (Version 3)
Quarter: 2018Q1

REPORT INFORMATION
  Report Type: Report from Study
  Country: None (occurrence: AR)
  Receive Date: 20180119
  Receipt Date: 20180319
  Transmission Date: 20180509
  Serious: Yes (Hospitalization)
  Sender: FDA-Public Use
  Company Number: AR-ABBVIE-18K-007-2229169-00

PATIENT
  Sex: Female

DRUGS (1)
  1. HUMIRA [Suspect]
     Active Substance: ADALIMUMAB
     Indication: CROHN^S DISEASE
     Route: 058
     Dates: start: 20140403, end: 201802

REACTIONS (4)
  - Aortic valve stenosis [Recovering/Resolving]
  - Emotional disorder [Unknown]
  - Crohn^s disease [Not Recovered/Not Resolved]
  - Aortic valve calcification [Recovering/Resolving]

NARRATIVE: CASE EVENT DATE: 2017
